FAERS Safety Report 5943237-2 (Version None)
Quarter: 2008Q4

REPORT INFORMATION
  Report Type: 
  Country: None (occurrence: None)
  Receive Date: 20081106
  Receipt Date: 20081027
  Transmission Date: 20090506
  Serious: No
  Sender: FDA-Public Use
  Company Number: GB-ROCHE-590264

PATIENT
  Sex: Female
  Weight: 76 kg

DRUGS (1)
  1. ORLISTAT [Suspect]
     Indication: OBESITY
     Route: 048
     Dates: start: 20080627, end: 20080909

REACTIONS (1)
  - SEBORRHOEIC KERATOSIS [None]
